FAERS Safety Report 4825197-0 (Version None)
Quarter: 2005Q4

REPORT INFORMATION
  Report Type: 
  Country: None (occurrence: None)
  Receive Date: 20051109
  Receipt Date: 20051109
  Transmission Date: 20060501
  Serious: Yes (Other)
  Sender: FDA-Public Use
  Company Number: None

PATIENT
  Sex: Male
  Weight: 113.9 kg

DRUGS (3)
  1. EMCYT/TAXOTERE [Suspect]
     Indication: PROSTATE CANCER
     Dosage: SEE IMAGE
     Dates: start: 20051024, end: 20051025
  2. DEXAMETHASONE [Suspect]
     Dosage: SEE IMAGE
     Dates: start: 20051024, end: 20051025
  3. ESTRAMUSTINE [Suspect]
     Dosage: SEE IMAGE
     Dates: start: 20051024, end: 20051028

REACTIONS (1)
  - HYPOKALAEMIA [None]
